FAERS Safety Report 9888751 (Version 2)
Quarter: 2014Q1

REPORT INFORMATION
  Report Type: Spontaneous
  Country: US (occurrence: US)
  Receive Date: 20140211
  Receipt Date: 20140317
  Transmission Date: 20141002
  Serious: No
  Sender: FDA-Public Use
  Company Number: US-009507513-1402USA005116

PATIENT
  Sex: Female
  Weight: 74.83 kg

DRUGS (7)
  1. OXYTROL FOR WOMEN [Suspect]
     Indication: HYPERTONIC BLADDER
     Dosage: 1 DF, Q4D
     Route: 062
     Dates: start: 201305
  2. DILTIAZEM HYDROCHLORIDE [Concomitant]
     Indication: HYPERTENSION
     Dosage: UNK, UNKNOWN
  3. PROTONIX [Concomitant]
     Indication: GASTROOESOPHAGEAL REFLUX DISEASE
     Dosage: UNK, UNKNOWN
  4. SYNTHROID [Concomitant]
     Indication: HYPOTHYROIDISM
     Dosage: UNK, UNKNOWN
  5. SAVELLA [Concomitant]
     Indication: PAIN
     Dosage: UNK, UNKNOWN
  6. FENTANYL [Concomitant]
     Indication: PAIN
     Dosage: UNK, UNKNOWN
  7. MYRBETRIQ [Concomitant]
     Indication: HYPERTONIC BLADDER
     Dosage: UNK, UNKNOWN

REACTIONS (3)
  - Condition aggravated [Recovering/Resolving]
  - Drug ineffective [Unknown]
  - Off label use [Unknown]
